FAERS Safety Report 7242030-0 (Version None)
Quarter: 2011Q1

REPORT INFORMATION
  Report Type: 
  Country: None (occurrence: None)
  Receive Date: 20110114
  Receipt Date: 20110111
  Transmission Date: 20110831
  Serious: Yes (Other)
  Sender: FDA-Public Use
  Company Number: 20109703

PATIENT
  Age: 68 Year
  Sex: Male

DRUGS (4)
  1. VESICARE [Concomitant]
  2. GABALON (INTRATHECAL(BACLOFEN INJECTION) [Suspect]
     Indication: MUSCLE SPASTICITY
     Dosage: MCG, DAILY, INTRATHECAL
     Route: 037
  3. AMLODIPINE [Concomitant]
  4. TAMSULOSIN HCL [Concomitant]

REACTIONS (1)
  - DYSURIA [None]
